FAERS Safety Report 14375325 (Version 1)
Quarter: 2018Q1

REPORT INFORMATION
  Report Type: Spontaneous
  Country: US (occurrence: US)
  Receive Date: 20180111
  Receipt Date: 20180111
  Transmission Date: 20180509
  Serious: No
  Sender: FDA-Public Use
  Company Number: US-GLAXOSMITHKLINE-US2018003344

PATIENT
  Age: 78 Year
  Sex: Female

DRUGS (11)
  1. HYDROCHLOROTHIAZIDE. [Concomitant]
     Active Substance: HYDROCHLOROTHIAZIDE
  2. LEVOTHYROXINE. [Concomitant]
     Active Substance: LEVOTHYROXINE
  3. LORAZEPAM. [Concomitant]
     Active Substance: LORAZEPAM
  4. ATORVASTATIN [Concomitant]
     Active Substance: ATORVASTATIN
  5. ATENOLOL. [Concomitant]
     Active Substance: ATENOLOL
  6. SPIRIVA [Concomitant]
     Active Substance: TIOTROPIUM BROMIDE MONOHYDRATE
  7. ADVAIR DISKUS [Suspect]
     Active Substance: FLUTICASONE PROPIONATE\SALMETEROL XINAFOATE
     Dosage: 500/50UG TWICE DAILY
     Route: 055
     Dates: start: 201709
  8. CALCIUM [Concomitant]
     Active Substance: CALCIUM
  9. FOSAMAX [Concomitant]
     Active Substance: ALENDRONATE SODIUM
  10. ALBUTEROL. [Concomitant]
     Active Substance: ALBUTEROL
  11. ADVAIR DISKUS [Suspect]
     Active Substance: FLUTICASONE PROPIONATE\SALMETEROL XINAFOATE
     Indication: CHRONIC OBSTRUCTIVE PULMONARY DISEASE
     Dosage: 250/50 UG TWICE DAILY
     Route: 055
     Dates: end: 201709

REACTIONS (16)
  - Fall [Unknown]
  - Foot fracture [Recovered/Resolved]
  - Prescription drug used without a prescription [Unknown]
  - Tremor [Unknown]
  - Fatigue [Not Recovered/Not Resolved]
  - Off label use [Unknown]
  - Visual impairment [Not Recovered/Not Resolved]
  - Dyspnoea [Not Recovered/Not Resolved]
  - Wrong technique in device usage process [Unknown]
  - Chest discomfort [Recovering/Resolving]
  - Condition aggravated [Not Recovered/Not Resolved]
  - Infection [Unknown]
  - Dizziness [Unknown]
  - Dry eye [Unknown]
  - Drug effect decreased [Unknown]
  - Pulmonary mass [Not Recovered/Not Resolved]

NARRATIVE: CASE EVENT DATE: 20170514
